FAERS Safety Report 12136884 (Version 1)
Quarter: 2016Q1

REPORT INFORMATION
  Report Type: Spontaneous
  Country: US (occurrence: None)
  Receive Date: 20160301
  Receipt Date: 20160301
  Transmission Date: 20160526
  Serious: Yes (Other)
  Sender: FDA-Public Use
  Company Number: None

PATIENT
  Sex: Female
  Weight: 90 kg

DRUGS (4)
  1. NEUTROGENA HEALTHY SKIN ANTI-WRINKLE CREAM SPF 15 [Suspect]
     Active Substance: ENSULIZOLE\OCTINOXATE
     Indication: PROPHYLAXIS AGAINST SOLAR RADIATION
     Dosage: DIME, ONCE A WHILE, TOPICAL
     Route: 061
  2. NEUTROGENA OIL FREE MOISTURE BROAD SPECTRUM SPF15 [Suspect]
     Active Substance: AVOBENZONE\OCTISALATE\OCTOCRYLENE\OXYBENZONE
     Indication: PROPHYLAXIS AGAINST SOLAR RADIATION
     Dosage: DIME, ONCE WHILE, TOPICAL
     Route: 061
  3. NEUTROGENA EXTRA GENTLE CLEANSER [Suspect]
     Active Substance: COSMETICS
     Indication: THERAPEUTIC SKIN CARE TOPICAL
     Dosage: DIME, ONCE A WHILE, TOPICAL
     Route: 061
  4. NEUTROGENA HEALTHY SKIN FACE SUNSCREEN SPF 15 [Suspect]
     Active Substance: OCTINOXATE\OXYBENZONE
     Indication: PROPHYLAXIS AGAINST SOLAR RADIATION
     Dosage: DIME, ONCE A WHILE, TOPICAL
     Route: 061

REACTIONS (1)
  - Skin cancer [None]
